FAERS Safety Report 7266122-5 (Version None)
Quarter: 2011Q1

REPORT INFORMATION
  Report Type: 
  Country: None (occurrence: None)
  Receive Date: 20110131
  Receipt Date: 20110121
  Transmission Date: 20110831
  Serious: Yes (Death, Other)
  Sender: FDA-Public Use
  Company Number: GB-AMGEN-GBRSP2010006471

PATIENT
  Sex: Female

DRUGS (5)
  1. CYTARABINE [Concomitant]
     Dosage: UNK
     Route: 042
     Dates: start: 20100105, end: 20100109
  2. CISPLATIN [Concomitant]
     Dosage: UNK
     Route: 042
     Dates: start: 20100105, end: 20100109
  3. NEULASTA [Suspect]
     Indication: CHEMOTHERAPY
     Dosage: 6 MG, UNK
     Route: 058
     Dates: start: 20100110, end: 20100110
  4. RITUXIMAB [Concomitant]
     Dosage: UNK
     Route: 042
     Dates: start: 20100105, end: 20100109
  5. DEXAMETHASONE [Concomitant]
     Dosage: UNK
     Route: 042
     Dates: start: 20100105, end: 20100109

REACTIONS (3)
  - NEUTROPHILIA [None]
  - LYMPHOMA [None]
  - NEUTROPENIA [None]
